FAERS Safety Report 24855656 (Version 6)
Quarter: 2025Q2

REPORT INFORMATION
  Report Type: Spontaneous
  Country: JP (occurrence: JP)
  Receive Date: 20250117
  Receipt Date: 20250628
  Transmission Date: 20250716
  Serious: Yes (Hospitalization, Other)
  Sender: GALDERMA
  Company Number: JP-GALDERMA-JP2024018762

PATIENT

DRUGS (13)
  1. NEMOLIZUMAB [Suspect]
     Active Substance: NEMOLIZUMAB
     Indication: Neurodermatitis
     Route: 058
     Dates: start: 20241126, end: 20241126
  2. JANUVIA [Concomitant]
     Active Substance: SITAGLIPTIN PHOSPHATE
     Indication: Type 2 diabetes mellitus
     Route: 048
  3. ANAGLIPTIN [Concomitant]
     Active Substance: ANAGLIPTIN
     Indication: Type 2 diabetes mellitus
     Route: 048
     Dates: start: 20180308, end: 20250114
  4. JARDIANCE [Concomitant]
     Active Substance: EMPAGLIFLOZIN
     Indication: Type 2 diabetes mellitus
     Route: 048
     Dates: start: 20241114, end: 20250106
  5. TELMISARTAN [Concomitant]
     Active Substance: TELMISARTAN
     Indication: Hypertension
     Route: 048
     Dates: start: 20240807, end: 20250106
  6. PREGABALIN [Concomitant]
     Active Substance: PREGABALIN
     Indication: Spinocerebellar disorder
     Route: 048
     Dates: start: 20231218
  7. TALTIRELIN [Concomitant]
     Active Substance: TALTIRELIN
     Indication: Spinocerebellar disorder
     Route: 048
     Dates: start: 20210728
  8. AMLODIPINE [Concomitant]
     Active Substance: AMLODIPINE BESYLATE
     Indication: Hypertension
     Route: 048
  9. HERBALS [Concomitant]
     Active Substance: HERBALS
     Indication: Irritability
     Route: 048
  10. DEPAKENE [Concomitant]
     Active Substance: VALPROIC ACID
     Indication: Delirium
     Route: 048
  11. DAYVIGO [Concomitant]
     Active Substance: LEMBOREXANT
     Indication: Insomnia
     Route: 048
  12. CHLORPROMAZINE [Concomitant]
     Active Substance: CHLORPROMAZINE
     Indication: Delirium
     Route: 048
  13. BILASTINE [Concomitant]
     Active Substance: BILASTINE
     Indication: Neurodermatitis
     Route: 048
     Dates: start: 20241126, end: 20241209

REACTIONS (2)
  - Dermatitis exfoliative generalised [Recovering/Resolving]
  - Pemphigoid [Recovering/Resolving]

NARRATIVE: CASE EVENT DATE: 20241224
